FAERS Safety Report 8090650-6 (Version None)
Quarter: 2012Q1

REPORT INFORMATION
  Report Type: 
  Country: None (occurrence: None)
  Receive Date: 20120129
  Receipt Date: 20111207
  Transmission Date: 20120608
  Serious: No
  Sender: FDA-Public Use
  Company Number: US-ABBOTT-11P-163-0881599-00

PATIENT
  Age: 58 Year
  Sex: Female

DRUGS (7)
  1. MELOXICAM [Concomitant]
     Indication: PAIN
  2. AMITRIPTYLINE HCL [Concomitant]
     Indication: SLEEP DISORDER
  3. PROLIA [Concomitant]
     Indication: BONE DISORDER
     Route: 050
  4. VENLAFAXINE [Concomitant]
     Indication: DEPRESSION
  5. TRILEPTAL [Concomitant]
     Indication: BRAIN OPERATION
  6. HUMIRA [Suspect]
     Indication: RHEUMATOID ARTHRITIS
     Dates: start: 20111122
  7. PHENOBARBITAL TAB [Concomitant]
     Indication: PRODUCT USED FOR UNKNOWN INDICATION

REACTIONS (3)
  - ERYTHEMA [None]
  - ARTHRITIS [None]
  - DEVICE MALFUNCTION [None]
